FAERS Safety Report 18150289 (Version 2)
Quarter: 2020Q3

REPORT INFORMATION
  Report Type: Spontaneous
  Country: GB (occurrence: GB)
  Receive Date: 20200814
  Receipt Date: 20200903
  Transmission Date: 20201103
  Serious: Yes (Other)
  Sender: FDA-Public Use
  Company Number: GB-MYLANLABS-2020M1070424

PATIENT
  Age: 44 Year
  Sex: Female
  Weight: 81.2 kg

DRUGS (7)
  1. QUETIAPINE. [Suspect]
     Active Substance: QUETIAPINE
     Indication: PRODUCT USED FOR UNKNOWN INDICATION
     Dosage: 150 MILLIGRAM
     Route: 065
  2. DEPIXOL                            /00109703/ [Suspect]
     Active Substance: FLUPENTIXOL DECANOATE
     Indication: SCHIZOPHRENIA
     Dosage: 10 MILLILITER, QW
     Route: 065
  3. DEPIXOL                            /00109703/ [Suspect]
     Active Substance: FLUPENTIXOL DECANOATE
     Dosage: 20 MILLIGRAM, Q3W
     Route: 030
     Dates: start: 2009, end: 20191023
  4. QUETIAPINE. [Suspect]
     Active Substance: QUETIAPINE
     Dosage: 40 MILLILITER
     Route: 065
  5. SERTRALINE [Concomitant]
     Active Substance: SERTRALINE HYDROCHLORIDE
     Dosage: 100 MILLIGRAM
     Route: 065
     Dates: start: 2017
  6. DEPIXOL                            /00109703/ [Suspect]
     Active Substance: FLUPENTIXOL DECANOATE
     Dosage: 20 MILLILITER, Q2W
     Route: 065
  7. SERTRALINE [Concomitant]
     Active Substance: SERTRALINE HYDROCHLORIDE
     Indication: ANXIETY
     Dosage: 50 MILLIGRAM
     Route: 065
     Dates: start: 201706

REACTIONS (16)
  - Hypomenorrhoea [Unknown]
  - Uterine leiomyoma [Unknown]
  - Nodule [Unknown]
  - Crying [Unknown]
  - Dysstasia [Unknown]
  - Syncope [Unknown]
  - Oligomenorrhoea [Recovered/Resolved]
  - Infertility female [Recovered/Resolved]
  - Product administration error [Unknown]
  - Emotional disorder [Unknown]
  - Overdose [Unknown]
  - Cyst [Unknown]
  - Feeling abnormal [Unknown]
  - Alopecia [Unknown]
  - Hormone level abnormal [Unknown]
  - Injection site discomfort [Unknown]
